FAERS Safety Report 5736148-9 (Version None)
Quarter: 2008Q2

REPORT INFORMATION
  Report Type: 
  Country: None (occurrence: None)
  Receive Date: 20080513
  Receipt Date: 20080513
  Transmission Date: 20081010
  Serious: Yes (Other)
  Sender: FDA-Public Use
  Company Number: A0727678A

PATIENT
  Age: 20 Year
  Sex: Female
  Weight: 90 kg

DRUGS (1)
  1. ALLI [Suspect]
     Indication: WEIGHT LOSS DIET
     Route: 048
     Dates: start: 20080512

REACTIONS (4)
  - BLADDER DISCOMFORT [None]
  - MICTURITION URGENCY [None]
  - MUSCLE SPASMS [None]
  - VAGINAL HAEMORRHAGE [None]
